FAERS Safety Report 21941935 (Version 1)
Quarter: 2023Q1

REPORT INFORMATION
  Report Type: Report from Study
  Country: US (occurrence: US)
  Receive Date: 20230202
  Receipt Date: 20230202
  Transmission Date: 20230418
  Serious: No
  Sender: FDA-Public Use
  Company Number: US-EXELIXIS-CABO-22055979

PATIENT
  Age: 74 Year
  Sex: Male
  Weight: 125.48 kg

DRUGS (3)
  1. CABOMETYX [Suspect]
     Active Substance: CABOZANTINIB S-MALATE
     Indication: Renal cell carcinoma
     Dosage: 60 MG, QD
     Route: 048
     Dates: start: 20220824
  2. CABOMETYX [Suspect]
     Active Substance: CABOZANTINIB S-MALATE
     Dosage: 40 MG, QD
     Route: 048
  3. CABOMETYX [Suspect]
     Active Substance: CABOZANTINIB S-MALATE
     Dosage: UNK
     Route: 048
     Dates: start: 202212

REACTIONS (11)
  - Dysphagia [Recovered/Resolved]
  - Cortisol decreased [Unknown]
  - Blood pressure increased [Recovering/Resolving]
  - Epistaxis [Unknown]
  - Fatigue [Unknown]
  - Blood calcium decreased [Recovering/Resolving]
  - Decreased appetite [Not Recovered/Not Resolved]
  - Platelet count decreased [Recovering/Resolving]
  - Dysgeusia [Unknown]
  - Lung neoplasm [Unknown]
  - Metastases to spine [Unknown]

NARRATIVE: CASE EVENT DATE: 20220920
